FAERS Safety Report 7582225-X (Version None)
Quarter: 2011Q2

REPORT INFORMATION
  Report Type: 
  Country: None (occurrence: None)
  Receive Date: 20110622
  Receipt Date: 20110607
  Transmission Date: 20111010
  Serious: Yes (Hospitalization, Other)
  Sender: FDA-Public Use
  Company Number: 2011MA006910

PATIENT
  Age: 34 Year
  Sex: Female

DRUGS (4)
  1. PROPRANOLOL [Concomitant]
  2. IODINE DROPS [Concomitant]
  3. CORTISOL [Concomitant]
  4. PROPYLTHIOURACIL TAB [Suspect]
     Indication: THYROID DISORDER
     Dosage: 50 MG

REACTIONS (10)
  - HYPERHIDROSIS [None]
  - TACHYCARDIA [None]
  - LID LAG [None]
  - PALPITATIONS [None]
  - HEPATOTOXICITY [None]
  - HEPATIC FAILURE [None]
  - TEMPERATURE INTOLERANCE [None]
  - RASH PAPULAR [None]
  - DIZZINESS [None]
  - TREMOR [None]
